FAERS Safety Report 4767123-9 (Version None)
Quarter: 2005Q3

REPORT INFORMATION
  Report Type: 
  Country: None (occurrence: None)
  Receive Date: 20050906
  Receipt Date: 20050624
  Transmission Date: 20060218
  Serious: No
  Sender: FDA-Public Use
  Company Number: 2005-BP-10792BP(0)

PATIENT
  Age: 62 Year
  Sex: Female

DRUGS (13)
  1. SPIRIVA [Suspect]
     Indication: CHRONIC OBSTRUCTIVE PULMONARY DISEASE
     Dosage: 18 MCG (18 MCG, QD) IH
     Route: 055
     Dates: start: 20050427, end: 20050428
  2. IPRATROPIUM BROMIDE [Concomitant]
  3. ALBUTEROL [Concomitant]
  4. SEREVENT [Concomitant]
  5. ACTONEL [Concomitant]
  6. PREMARIN [Concomitant]
  7. VERAPAMIL [Concomitant]
  8. OXYBUTYNIN [Concomitant]
  9. PROTONIX [Concomitant]
  10. MULTI-V [Concomitant]
  11. CALCIUM GLUCONATE [Concomitant]
  12. ACETYLSALICYLIC ACID SRT [Concomitant]
  13. OXYGEN [Concomitant]

REACTIONS (1)
  - URINARY TRACT INFECTION [None]
